FAERS Safety Report 19272335 (Version 1)
Quarter: 2021Q2

REPORT INFORMATION
  Report Type: Spontaneous
  Country: FR (occurrence: FR)
  Receive Date: 20210518
  Receipt Date: 20210518
  Transmission Date: 20210717
  Serious: Yes (Other)
  Sender: FDA-Public Use
  Company Number: FR-UCBSA-2021021994

PATIENT
  Age: 67 Year
  Sex: Female

DRUGS (1)
  1. KEPPRA [Suspect]
     Active Substance: LEVETIRACETAM
     Indication: PRODUCT USED FOR UNKNOWN INDICATION
     Dosage: 125 MG IN THE MORNING AND 250 MG IN THE EVENING
     Dates: start: 20200701

REACTIONS (4)
  - Insulin-like growth factor abnormal [Unknown]
  - Weight decreased [Unknown]
  - Off label use [Unknown]
  - C-telopeptide increased [Unknown]

NARRATIVE: CASE EVENT DATE: 202007
